FAERS Safety Report 9027808 (Version 1)
Quarter: 2013Q1

REPORT INFORMATION
  Report Type: Spontaneous
  Country: GB (occurrence: GB)
  Receive Date: 20130124
  Receipt Date: 20130124
  Transmission Date: 20140127
  Serious: Yes (Hospitalization, Other)
  Sender: FDA-Public Use
  Company Number: GB-JNJFOC-20130108285

PATIENT
  Sex: Female

DRUGS (17)
  1. STELARA [Suspect]
     Indication: PSORIASIS
     Route: 058
  2. STELARA [Suspect]
     Indication: PSORIASIS
     Route: 058
     Dates: start: 20120920, end: 20120920
  3. STELARA [Suspect]
     Indication: PSORIASIS
     Route: 058
     Dates: start: 20121022, end: 20121022
  4. TRAMADOL [Concomitant]
     Route: 065
  5. SIMVASTATIN [Concomitant]
     Route: 065
  6. VENTOLIN [Concomitant]
     Route: 065
  7. AZATHIOPRINE [Concomitant]
     Route: 065
  8. FOLIC ACID [Concomitant]
     Route: 065
  9. OMEPRAZOLE [Concomitant]
     Route: 065
  10. MIRTAZAPINE [Concomitant]
     Route: 065
  11. QVAR INHALER [Concomitant]
     Route: 065
  12. METFORMIN [Concomitant]
     Route: 065
  13. AMLODIPINE [Concomitant]
     Route: 065
  14. SAXAGLIPTIN [Concomitant]
     Route: 065
  15. ANALGESICS [Concomitant]
     Indication: PAIN
     Route: 065
  16. ORAMORPH [Concomitant]
     Route: 065
  17. METHOTREXATE [Concomitant]
     Route: 065

REACTIONS (5)
  - Psoriasis [Recovering/Resolving]
  - Swelling face [Unknown]
  - Oedema peripheral [Unknown]
  - Nasopharyngitis [Unknown]
  - Intentional drug misuse [Unknown]
